FAERS Safety Report 15075082 (Version 1)
Quarter: 2018Q2

REPORT INFORMATION
  Report Type: Spontaneous
  Country: US (occurrence: US)
  Receive Date: 20180627
  Receipt Date: 20180627
  Transmission Date: 20180711
  Serious: Yes (Other)
  Sender: FDA-Public Use
  Company Number: US-SAOL THERAPEUTICS-2017SAO03446

PATIENT
  Age: 63 Year
  Sex: Female

DRUGS (3)
  1. BUPIVACAINE. [Suspect]
     Active Substance: BUPIVACAINE
     Dosage: 3.2 MG, \DAY
     Route: 037
  2. BACLOFEN. [Suspect]
     Active Substance: BACLOFEN
     Indication: MUSCLE SPASTICITY
     Dosage: 320 ?G, \DAY
     Route: 037
  3. MORPHINE [Suspect]
     Active Substance: MORPHINE
     Dosage: 1.2 MG, \DAY
     Route: 037

REACTIONS (3)
  - Device information output issue [Recovered/Resolved]
  - Device dislocation [Recovered/Resolved]
  - Muscle spasticity [Unknown]

NARRATIVE: CASE EVENT DATE: 20171205
